FAERS Safety Report 24572005 (Version 1)
Quarter: 2024Q4

REPORT INFORMATION
  Report Type: Spontaneous
  Country: US (occurrence: None)
  Receive Date: 20241031
  Receipt Date: 20241031
  Transmission Date: 20250115
  Serious: Yes (Life-Threatening)
  Sender: Public
  Company Number: None

PATIENT
  Age: 59 Year
  Sex: Male
  Weight: 78 kg

DRUGS (1)
  1. SODIUM FERRIC GLUCONATE COMPLEX [Suspect]
     Active Substance: SODIUM FERRIC GLUCONATE COMPLEX
     Indication: Iron deficiency anaemia
     Dosage: 250.00 MG ONCE INTRAVENOUS ?
     Route: 042
     Dates: start: 20240624, end: 20240624

REACTIONS (6)
  - Anaphylactic reaction [None]
  - Nausea [None]
  - Hypoaesthesia [None]
  - Paraesthesia [None]
  - Hot flush [None]
  - Retching [None]

NARRATIVE: CASE EVENT DATE: 20240624
